FAERS Safety Report 7266515-6 (Version None)
Quarter: 2011Q1

REPORT INFORMATION
  Report Type: 
  Country: None (occurrence: None)
  Receive Date: 20110131
  Receipt Date: 20110126
  Transmission Date: 20110831
  Serious: Yes (Other)
  Sender: FDA-Public Use
  Company Number: FR-PFIZER INC-2010167607

PATIENT
  Age: 53 Year
  Sex: Female
  Weight: 60 kg

DRUGS (1)
  1. TAHOR [Suspect]
     Indication: BLOOD CHOLESTEROL
     Dosage: 1 DF, 1X/DAY
     Dates: start: 20060101

REACTIONS (8)
  - LIGAMENT OPERATION [None]
  - CHEST PAIN [None]
  - CHEST DISCOMFORT [None]
  - BACK PAIN [None]
  - INSOMNIA [None]
  - MYALGIA [None]
  - MUSCULOSKELETAL PAIN [None]
  - HYPOAESTHESIA [None]
